FAERS Safety Report 8852421 (Version 1)
Quarter: 2012Q4

REPORT INFORMATION
  Report Type: 
  Country: US (occurrence: US)
  Receive Date: 20121022
  Receipt Date: 20121022
  Transmission Date: 20130627
  Serious: Yes (Other)
  Sender: FDA-Public Use
  Company Number: US-ROXANE LABORATORIES, INC.-2012-RO-02034RO

PATIENT
  Sex: Female
  Weight: 89 kg

DRUGS (8)
  1. MORPHINE [Suspect]
     Dosage: 150 mg
  2. FENTANYL [Suspect]
     Indication: FIBROMYALGIA
     Route: 062
     Dates: start: 2011
  3. GABAPENTIN [Suspect]
     Dosage: 1800 mg
     Route: 048
  4. ELAVIL [Suspect]
     Dosage: 100 mg
  5. COZAAR [Suspect]
     Dosage: 50 mg
  6. ZANAFLEX [Suspect]
     Dosage: 12 mg
  7. NEXIUM [Suspect]
     Dosage: 4 mg
  8. PERCOCET [Suspect]

REACTIONS (3)
  - Memory impairment [Unknown]
  - Pain [Unknown]
  - Rheumatoid arthritis [Unknown]
